FAERS Safety Report 15375115 (Version 1)
Quarter: 2018Q3

REPORT INFORMATION
  Report Type: Spontaneous
  Country: US (occurrence: US)
  Receive Date: 20180912
  Receipt Date: 20180912
  Transmission Date: 20181010
  Serious: No
  Sender: FDA-Public Use
  Company Number: US-ASTRAZENECA-2018SF15206

PATIENT
  Sex: Female

DRUGS (2)
  1. INCRUSE ELLIPTA [Concomitant]
     Active Substance: UMECLIDINIUM BROMIDE
  2. SYMBICORT [Suspect]
     Active Substance: BUDESONIDE\FORMOTEROL FUMARATE DIHYDRATE
     Dosage: 160/4.5MCG 2 PUFFS IN THE MORNING 2 PUFFS
     Route: 055

REACTIONS (5)
  - Product quality issue [Unknown]
  - Visual impairment [Unknown]
  - Drug dose omission [Unknown]
  - Intentional device misuse [Unknown]
  - Lung disorder [Unknown]
